FAERS Safety Report 9846729 (Version 1)
Quarter: 2014Q1

REPORT INFORMATION
  Report Type: Spontaneous
  Country: US (occurrence: US)
  Receive Date: 20140127
  Receipt Date: 20140127
  Transmission Date: 20141002
  Serious: No
  Sender: FDA-Public Use
  Company Number: US-GILEAD-2012-0048930

PATIENT
  Sex: Male
  Weight: 83.45 kg

DRUGS (3)
  1. COMPLERA [Suspect]
     Indication: HIV INFECTION
     Dosage: 1 DF, UNK
     Route: 048
     Dates: start: 20111216
  2. VALTREX [Concomitant]
     Indication: HERPES VIRUS INFECTION
     Dosage: 1 G, TID
     Route: 048
  3. BENZOYL PEROXIDE [Concomitant]
     Indication: ACNE
     Dosage: 10 %, BID
     Route: 061

REACTIONS (1)
  - Rash maculo-papular [Not Recovered/Not Resolved]
